FAERS Safety Report 18173851 (Version 2)
Quarter: 2020Q3

REPORT INFORMATION
  Report Type: Spontaneous
  Country: CA (occurrence: CA)
  Receive Date: 20200820
  Receipt Date: 20200924
  Transmission Date: 20201103
  Serious: Yes (Other)
  Sender: FDA-Public Use
  Company Number: CA-CELLTRION INC.-2016CA011035

PATIENT

DRUGS (25)
  1. INFLECTRA [Suspect]
     Active Substance: INFLIXIMAB-DYYB
     Indication: PSORIASIS
     Dosage: 300 MG, (EVERY 2, 6 WEEKS THEN EVERY 8 WEEKS FOR 12 MONTHS
     Route: 042
     Dates: start: 20160627, end: 20170927
  2. INFLECTRA [Suspect]
     Active Substance: INFLIXIMAB-DYYB
     Dosage: 300 MG, (EVERY 6 WEEKS FOR 2 INFUSIONS)
     Route: 042
     Dates: start: 20190806
  3. INFLECTRA [Suspect]
     Active Substance: INFLIXIMAB-DYYB
     Dosage: 400 MG, (EVERY 6 WEEKS FOR 2 INFUSIONS)
     Route: 042
     Dates: start: 20191211
  4. INFLECTRA [Suspect]
     Active Substance: INFLIXIMAB-DYYB
     Dosage: 300 MG, (EVERY 2, 6 WEEKS, THEN EVERY 8 WEEKS FOR 12 MONTHS)
     Route: 042
     Dates: start: 20160627, end: 20170927
  5. INFLECTRA [Suspect]
     Active Substance: INFLIXIMAB-DYYB
     Dosage: 300 MG, (EVERY 6 WEEKS FOR 2 INFUSIONS)
     Route: 042
     Dates: start: 20171109
  6. INFLECTRA [Suspect]
     Active Substance: INFLIXIMAB-DYYB
     Dosage: 300 MG, (EVERY 6 WEEKS FOR 2 INFUSIONS)
     Route: 042
     Dates: start: 20180808
  7. INFLECTRA [Suspect]
     Active Substance: INFLIXIMAB-DYYB
     Dosage: 400 MG, (EVERY 6 WEEKS FOR 2 INFUSIONS)
     Route: 042
     Dates: start: 20191211
  8. INFLECTRA [Suspect]
     Active Substance: INFLIXIMAB-DYYB
     Dosage: 400 MG, (EVERY 6 WEEKS FOR 2 INFUSIONS)
     Route: 042
     Dates: start: 20200121
  9. INFLECTRA [Suspect]
     Active Substance: INFLIXIMAB-DYYB
     Dosage: 400 MG, (EVERY 6 WEEKS FOR 2 INFUSIONS)
     Route: 042
     Dates: start: 20200317
  10. INFLECTRA [Suspect]
     Active Substance: INFLIXIMAB-DYYB
     Dosage: 400 MG, (EVERY 6 WEEKS FOR 2 INFUSIONS)
     Route: 042
     Dates: start: 20200610
  11. INFLECTRA [Suspect]
     Active Substance: INFLIXIMAB-DYYB
     Indication: ANKYLOSING SPONDYLITIS
     Dosage: 300 MG, (EVERY 2, 6 WEEKS, THEN EVERY 8 WEEKS FOR 12 MONTHS)
     Route: 042
     Dates: start: 20160627, end: 20170927
  12. INFLECTRA [Suspect]
     Active Substance: INFLIXIMAB-DYYB
     Dosage: 300 MG, (EVERY 6 WEEKS FOR 2 INFUSIONS)
     Route: 042
     Dates: start: 20190918
  13. INFLECTRA [Suspect]
     Active Substance: INFLIXIMAB-DYYB
     Dosage: 400 MG EVERY 6 WEEKS
     Route: 042
     Dates: start: 20200812
  14. INFLECTRA [Suspect]
     Active Substance: INFLIXIMAB-DYYB
     Dosage: 400 MG EVERY 6 WEEKS
     Route: 042
     Dates: start: 20200812
  15. INFLECTRA [Suspect]
     Active Substance: INFLIXIMAB-DYYB
     Dosage: 300 MG, (EVERY 6 WEEKS FOR 2 INFUSIONS)
     Route: 042
     Dates: start: 20171218
  16. INFLECTRA [Suspect]
     Active Substance: INFLIXIMAB-DYYB
     Dosage: 300 MG, (EVERY 6 WEEKS FOR 2 INFUSIONS)
     Route: 042
     Dates: start: 20180205
  17. INFLECTRA [Suspect]
     Active Substance: INFLIXIMAB-DYYB
     Dosage: 400 MG, (EVERY 6 WEEKS FOR 2 INFUSIONS)
     Route: 042
     Dates: start: 20200317
  18. INFLECTRA [Suspect]
     Active Substance: INFLIXIMAB-DYYB
     Dosage: 300 MG, (EVERY 6 WEEKS FOR 2 INFUSIONS)
     Route: 042
     Dates: start: 20180919
  19. INFLECTRA [Suspect]
     Active Substance: INFLIXIMAB-DYYB
     Dosage: 300 MG, (EVERY 2, 6 WEEKS, THEN EVERY 8 WEEKS FOR 12 MONTHS)
     Route: 042
     Dates: start: 20160627, end: 20170927
  20. INFLECTRA [Suspect]
     Active Substance: INFLIXIMAB-DYYB
     Dosage: 400 MG, (EVERY 6 WEEKS FOR 2 INFUSIONS)
     Route: 042
     Dates: start: 20200317
  21. TOPAMAX [Concomitant]
     Active Substance: TOPIRAMATE
     Dosage: UNK
  22. SEROQUEL [Concomitant]
     Active Substance: QUETIAPINE FUMARATE
     Dosage: 10 MG, 1X/DAY
     Route: 048
  23. INFLECTRA [Suspect]
     Active Substance: INFLIXIMAB-DYYB
     Dosage: 300 MG, (EVERY 6 WEEKS FOR 2 INFUSIONS)
     Route: 042
     Dates: start: 20180319
  24. INFLECTRA [Suspect]
     Active Substance: INFLIXIMAB-DYYB
     Dosage: 300 MG, (EVERY 2, 6 WEEKS, THEN EVERY 8 WEEKS FOR 12 MONTHS)
     Route: 042
     Dates: start: 20160627, end: 20170927
  25. INFLECTRA [Suspect]
     Active Substance: INFLIXIMAB-DYYB
     Dosage: 300 MG, (EVERY 6 WEEKS FOR 2 INFUSIONS)
     Route: 042
     Dates: start: 20190320

REACTIONS (14)
  - Therapeutic response shortened [Unknown]
  - Fatigue [Recovered/Resolved]
  - Off label use [Unknown]
  - Pain in extremity [Unknown]
  - Inappropriate schedule of product administration [Unknown]
  - Pain [Not Recovered/Not Resolved]
  - Urinary tract infection [Recovered/Resolved]
  - Incorrect dose administered [Unknown]
  - Intentional product use issue [Unknown]
  - Migraine [Not Recovered/Not Resolved]
  - Fibromyalgia [Unknown]
  - Weight decreased [Unknown]
  - Arthralgia [Recovering/Resolving]
  - Kidney infection [Recovered/Resolved]

NARRATIVE: CASE EVENT DATE: 2016
